FAERS Safety Report 18030981 (Version 1)
Quarter: 2020Q3

REPORT INFORMATION
  Report Type: Other
  Country: HR (occurrence: HR)
  Receive Date: 20200715
  Receipt Date: 20200715
  Transmission Date: 20201103
  Serious: Yes (Hospitalization)
  Sender: FDA-Public Use
  Company Number: HR-ROCHE-2642310

PATIENT
  Age: 50 Year
  Sex: Female

DRUGS (2)
  1. OCRELIZUMAB. [Suspect]
     Active Substance: OCRELIZUMAB
     Route: 042
     Dates: start: 202001
  2. OCRELIZUMAB. [Suspect]
     Active Substance: OCRELIZUMAB
     Indication: RELAPSING-REMITTING MULTIPLE SCLEROSIS
     Route: 042
     Dates: start: 20190701

REACTIONS (1)
  - Pancreatitis acute [Recovered/Resolved]

NARRATIVE: CASE EVENT DATE: 202005
